FAERS Safety Report 24188191 (Version 2)
Quarter: 2024Q3

REPORT INFORMATION
  Report Type: Spontaneous
  Country: JP (occurrence: JP)
  Receive Date: 20240808
  Receipt Date: 20240902
  Transmission Date: 20241017
  Serious: Yes (Other)
  Sender: ACCORD
  Company Number: JP-Accord-438952

PATIENT
  Age: 72 Year
  Sex: Female
  Weight: 50 kg

DRUGS (8)
  1. GEMCITABINE [Suspect]
     Active Substance: GEMCITABINE
     Indication: Adenocarcinoma pancreas
     Dosage: 12 CYCLES
     Route: 042
     Dates: start: 202004, end: 202102
  2. PACLITAXEL [Suspect]
     Active Substance: PACLITAXEL
     Indication: Adenocarcinoma pancreas
     Dosage: 12 CYCLES
     Route: 042
     Dates: start: 202004, end: 202102
  3. EDOXABAN [Concomitant]
     Active Substance: EDOXABAN
     Indication: Pulmonary embolism
     Route: 048
  4. PANCRELIPASE [Concomitant]
     Active Substance: PANCRELIPASE\PANCRELIPASE AMYLASE\PANCRELIPASE LIPASE\PANCRELIPASE PROTEASE
     Indication: Pancreatic failure
  5. GEMCITABINE [Suspect]
     Active Substance: GEMCITABINE
     Indication: Adenocarcinoma pancreas
     Dosage: 12 CYCLES
     Dates: start: 202004, end: 202102
  6. GEMCITABINE [Suspect]
     Active Substance: GEMCITABINE
     Indication: Pancreatic carcinoma stage III
     Dosage: 12 CYCLES
     Dates: start: 202004, end: 202102
  7. PACLITAXEL [Suspect]
     Active Substance: PACLITAXEL
     Indication: Pancreatic carcinoma stage III
     Dosage: 12 CYCLES
     Dates: start: 202004, end: 202102
  8. PACLITAXEL [Suspect]
     Active Substance: PACLITAXEL
     Indication: Adenocarcinoma pancreas
     Dosage: 12 CYCLES
     Dates: start: 202004, end: 202102

REACTIONS (1)
  - Interstitial lung disease [Recovered/Resolved]

NARRATIVE: CASE EVENT DATE: 20210201
